FAERS Safety Report 6824347-4 (Version None)
Quarter: 2010Q3

REPORT INFORMATION
  Report Type: 
  Country: None (occurrence: None)
  Receive Date: 20100708
  Receipt Date: 20061020
  Transmission Date: 20110219
  Serious: No
  Sender: FDA-Public Use
  Company Number: US-PFIZER INC-2006131065

PATIENT
  Sex: Female
  Weight: 63.96 kg

DRUGS (6)
  1. CHANTIX [Suspect]
     Indication: SMOKING CESSATION THERAPY
     Dates: start: 20060901
  2. SYNTHROID [Concomitant]
  3. HYDROCHLOROTHIAZIDE [Concomitant]
     Indication: HYPERTENSION
  4. KLOR-CON [Concomitant]
     Indication: BLOOD POTASSIUM DECREASED
  5. ACETYLSALICYLIC ACID [Concomitant]
  6. ALTACE [Concomitant]
     Indication: HYPERTENSION
     Dates: end: 20060101

REACTIONS (2)
  - MUSCLE STRAIN [None]
  - RENAL PAIN [None]
